FAERS Safety Report 7948300-2 (Version None)
Quarter: 2011Q4

REPORT INFORMATION
  Report Type: 
  Country: None (occurrence: None)
  Receive Date: 20111130
  Receipt Date: 20111125
  Transmission Date: 20120403
  Serious: No
  Sender: FDA-Public Use
  Company Number: US-PFIZER INC-2011288548

PATIENT
  Sex: Male
  Weight: 12.698 kg

DRUGS (1)
  1. CHILDREN'S ADVIL [Suspect]
     Indication: PYREXIA
     Dosage: 100 MG, UNK
     Route: 048
     Dates: start: 20111122, end: 20111124

REACTIONS (5)
  - MALAISE [None]
  - GENERALISED ERYTHEMA [None]
  - RASH GENERALISED [None]
  - PRURITUS [None]
  - SWELLING [None]
